FAERS Safety Report 13152760 (Version 3)
Quarter: 2017Q1

REPORT INFORMATION
  Report Type: Spontaneous
  Country: US (occurrence: US)
  Receive Date: 20170125
  Receipt Date: 20170131
  Transmission Date: 20170428
  Serious: Yes (Other)
  Sender: FDA-Public Use
  Company Number: US-ELI_LILLY_AND_COMPANY-US201701008598

PATIENT
  Age: 66 Year
  Sex: Male

DRUGS (3)
  1. HUMULIN R [Suspect]
     Active Substance: INSULIN HUMAN
     Indication: PRODUCT USED FOR UNKNOWN INDICATION
     Dosage: 40 U, TID
     Route: 065
     Dates: start: 2002, end: 20170116
  2. HUMULIN R U-500 [Suspect]
     Active Substance: INSULIN HUMAN
     Indication: TYPE 2 DIABETES MELLITUS
     Dosage: 40 U, TID
     Route: 065
     Dates: start: 20170117
  3. HUMULIN R U-500 [Suspect]
     Active Substance: INSULIN HUMAN
     Dosage: 200 U, TID
     Route: 065

REACTIONS (5)
  - Blood glucose increased [Unknown]
  - Drug ineffective [Unknown]
  - Renal failure [Unknown]
  - Incorrect dose administered [Unknown]
  - Blood glucose increased [Unknown]

NARRATIVE: CASE EVENT DATE: 20170117
